FAERS Safety Report 9242158 (Version 1)
Quarter: 2013Q2

REPORT INFORMATION
  Report Type: Spontaneous
  Country: DE (occurrence: DE)
  Receive Date: 20130419
  Receipt Date: 20130419
  Transmission Date: 20140414
  Serious: Yes (Life-Threatening, Hospitalization, Congenital Anomaly)
  Sender: FDA-Public Use
  Company Number: DE-TEVA-396808GER

PATIENT
  Age: 0 Day
  Sex: Male

DRUGS (1)
  1. CITALOPRAM [Suspect]
     Route: 064

REACTIONS (4)
  - Premature baby [Unknown]
  - Pulmonary hypertension [Unknown]
  - Apnoea neonatal [Unknown]
  - Foetal exposure timing unspecified [Unknown]
